FAERS Safety Report 6270527-9 (Version None)
Quarter: 2009Q3

REPORT INFORMATION
  Report Type: 
  Country: None (occurrence: None)
  Receive Date: 20090716
  Receipt Date: 20090707
  Transmission Date: 20100115
  Serious: Yes (Other)
  Sender: FDA-Public Use
  Company Number: CA-JNJFOC-20090301638

PATIENT
  Sex: Female
  Weight: 103 kg

DRUGS (2)
  1. REMICADE [Suspect]
     Indication: COLITIS
     Route: 042
  2. METHOTREXATE [Concomitant]

REACTIONS (1)
  - LUPUS-LIKE SYNDROME [None]
